FAERS Safety Report 5483331-6 (Version None)
Quarter: 2007Q4

REPORT INFORMATION
  Report Type: 
  Country: None (occurrence: None)
  Receive Date: 20071012
  Receipt Date: 20071008
  Transmission Date: 20080405
  Serious: Yes (Death, Hospitalization, Other)
  Sender: FDA-Public Use
  Company Number: PHHO2007BR16643

PATIENT
  Sex: Female

DRUGS (1)
  1. FORASEQ [Suspect]
     Indication: HYPERSENSITIVITY
     Dates: start: 20070905

REACTIONS (2)
  - CATHETER PLACEMENT [None]
  - RESPIRATORY FAILURE [None]
